FAERS Safety Report 5061444-0 (Version None)
Quarter: 2006Q3

REPORT INFORMATION
  Report Type: 
  Country: None (occurrence: None)
  Receive Date: 20060721
  Receipt Date: 20060630
  Transmission Date: 20061208
  Serious: Yes (Death, Hospitalization)
  Sender: FDA-Public Use
  Company Number: 2006RR-02906

PATIENT
  Age: 45 Year
  Sex: Male

DRUGS (7)
  1. SIMVASTATIN [Suspect]
     Indication: HYPERLIPIDAEMIA
     Dosage: 40 MG, QD, ORAL
     Route: 048
  2. CYCLOSPORINE [Suspect]
     Indication: HYPERLIPIDAEMIA
     Dosage: 75 MG, BID, ORAL
     Route: 048
  3. GEMFIBROZIL [Suspect]
     Indication: HYPERLIPIDAEMIA
     Dosage: 600 MG, BID, ORAL
     Route: 048
  4. ITRACONAZOLE [Suspect]
     Indication: HYPERLIPIDAEMIA
     Dosage: 200 MG, BID, ORAL
     Route: 048
  5. MYCOPHENOLATE MOFETIL [Concomitant]
  6. PREDNISOLONE [Concomitant]
  7. PREDNISONE (PREDNISOLONE) [Concomitant]

REACTIONS (19)
  - ABDOMINAL PAIN [None]
  - ASTHENIA [None]
  - BLOOD POTASSIUM INCREASED [None]
  - BRONCHOPULMONARY ASPERGILLOSIS [None]
  - COORDINATION ABNORMAL [None]
  - DRUG INTERACTION [None]
  - ENTEROCOCCAL INFECTION [None]
  - HAEMODIALYSIS [None]
  - HYPERLIPIDAEMIA [None]
  - HYPOTENSION [None]
  - INTESTINAL INFARCTION [None]
  - LETHARGY [None]
  - MULTI-ORGAN FAILURE [None]
  - MUSCULAR WEAKNESS [None]
  - MYALGIA [None]
  - OLIGURIA [None]
  - RHABDOMYOLYSIS [None]
  - SEPSIS [None]
  - SPLENIC INFARCTION [None]
